FAERS Safety Report 25467690 (Version 1)
Quarter: 2025Q2

REPORT INFORMATION
  Report Type: Spontaneous
  Country: CA (occurrence: CA)
  Receive Date: 20250623
  Receipt Date: 20250623
  Transmission Date: 20250716
  Serious: Yes (Disabling, Other)
  Sender: SANOFI AVENTIS
  Company Number: CA-SA-2025SA176425

PATIENT

DRUGS (1)
  1. INSULIN ASPART [Suspect]
     Active Substance: INSULIN ASPART
     Indication: Type 1 diabetes mellitus
     Route: 065

REACTIONS (4)
  - Seizure [Unknown]
  - Blood glucose increased [Unknown]
  - Disability [Unknown]
  - Extra dose administered [Unknown]
